FAERS Safety Report 9283881 (Version 1)
Quarter: 2013Q2

REPORT INFORMATION
  Report Type: Spontaneous
  Country: US (occurrence: US)
  Receive Date: 20130510
  Receipt Date: 20130510
  Transmission Date: 20140414
  Serious: Yes (Other)
  Sender: FDA-Public Use
  Company Number: US-PFIZER INC-2013140224

PATIENT
  Age: 82 Year
  Sex: 0

DRUGS (2)
  1. LEVOXYL [Suspect]
     Dosage: 0.25
  2. LEVOXYL [Suspect]
     Dosage: 0.5

REACTIONS (1)
  - Deafness [Unknown]
